FAERS Safety Report 13795384 (Version 2)
Quarter: 2017Q4

REPORT INFORMATION
  Report Type: Spontaneous
  Country: CA (occurrence: CA)
  Receive Date: 20170726
  Receipt Date: 20171123
  Transmission Date: 20180320
  Serious: Yes (Death, Hospitalization, Other)
  Sender: FDA-Public Use
  Company Number: CA-VISTAPHARM, INC.-VER201707-000229

PATIENT
  Age: 3 Week
  Sex: Male

DRUGS (2)
  1. METHADONE [Suspect]
     Active Substance: METHADONE HYDROCHLORIDE
     Route: 063
  2. METHADONE [Suspect]
     Active Substance: METHADONE HYDROCHLORIDE
     Indication: PRODUCT USED FOR UNKNOWN INDICATION
     Route: 064

REACTIONS (4)
  - Exposure during breast feeding [Unknown]
  - Brain injury [Fatal]
  - Toxicity to various agents [Not Recovered/Not Resolved]
  - Exposure during pregnancy [Unknown]
